FAERS Safety Report 24116302 (Version 4)
Quarter: 2024Q3

REPORT INFORMATION
  Report Type: Report from Study
  Country: KR (occurrence: KR)
  Receive Date: 20240722
  Receipt Date: 20240902
  Transmission Date: 20241017
  Serious: Yes (Other)
  Sender: ASTELLAS
  Company Number: KR-ASTELLAS-2024US020406

PATIENT
  Age: 34 Year
  Sex: Male
  Weight: 89.8 kg

DRUGS (3)
  1. GILTERITINIB [Suspect]
     Active Substance: GILTERITINIB
     Indication: Acute myeloid leukaemia
     Route: 048
     Dates: start: 20191115, end: 20240716
  2. GILTERITINIB [Suspect]
     Active Substance: GILTERITINIB
     Dosage: 120 MG, ONCE DAILY
     Route: 048
     Dates: start: 20240726
  3. GILTERITINIB [Suspect]
     Active Substance: GILTERITINIB
     Dosage: 80 MG, UNKNOWN FREQUENCY
     Route: 048
     Dates: start: 20240810

REACTIONS (1)
  - Haemolysis [Recovering/Resolving]

NARRATIVE: CASE EVENT DATE: 20240716
